FAERS Safety Report 18536665 (Version 2)
Quarter: 2021Q1

REPORT INFORMATION
  Report Type: Spontaneous
  Country: US (occurrence: US)
  Receive Date: 20201123
  Receipt Date: 20210319
  Transmission Date: 20210419
  Serious: No
  Sender: FDA-Public Use
  Company Number: NVSC2020US305181

PATIENT

DRUGS (1)
  1. KESIMPTA [Suspect]
     Active Substance: OFATUMUMAB
     Indication: MULTIPLE SCLEROSIS
     Dosage: 20 MG, QW (BENEATH THE SKIN)
     Route: 058
     Dates: start: 20201027

REACTIONS (1)
  - Visual impairment [Recovered/Resolved with Sequelae]
